FAERS Safety Report 15265355 (Version 3)
Quarter: 2018Q3

REPORT INFORMATION
  Report Type: Spontaneous
  Country: TW (occurrence: TW)
  Receive Date: 20180810
  Receipt Date: 20180831
  Transmission Date: 20181010
  Serious: Yes (Life-Threatening, Hospitalization, Other)
  Sender: FDA-Public Use
  Company Number: TW-GILEAD-2018-0354980

PATIENT
  Age: 76 Year
  Sex: Female
  Weight: 50 kg

DRUGS (9)
  1. COMPESOLON [Concomitant]
     Active Substance: PREDNISOLONE
     Dosage: 5 MG, BID
  2. RIBAVIRIN. [Suspect]
     Active Substance: RIBAVIRIN
     Indication: CHRONIC HEPATITIS C
     Dosage: 400 MG, QD
     Route: 048
     Dates: start: 20180717, end: 20180809
  3. LUCKYHEPA [Concomitant]
     Dosage: 1 DF, BID
     Route: 048
     Dates: start: 20170925, end: 201801
  4. OMEZOL                             /00661201/ [Concomitant]
     Active Substance: OMEPRAZOLE
     Dosage: UNK
  5. LUCKYHEPA [Concomitant]
     Dosage: UNK
  6. MAGNESIUM OXIDE. [Concomitant]
     Active Substance: MAGNESIUM OXIDE
     Dosage: 1 DF, BID
     Route: 048
     Dates: start: 20180717, end: 20180724
  7. THROUGH [Concomitant]
     Dosage: 1 DF, QHS
     Route: 048
     Dates: start: 20180717, end: 20180724
  8. RANITIDINE. [Concomitant]
     Active Substance: RANITIDINE
     Dosage: 1 DF, QHS
     Route: 048
     Dates: start: 20180717, end: 20180724
  9. SOVALDI [Suspect]
     Active Substance: SOFOSBUVIR
     Indication: CHRONIC HEPATITIS C
     Dosage: 1 DF, QD
     Route: 048
     Dates: start: 20180717, end: 20180809

REACTIONS (1)
  - Immune thrombocytopenic purpura [Recovering/Resolving]

NARRATIVE: CASE EVENT DATE: 20180801
